FAERS Safety Report 9946978 (Version 1)
Quarter: 2014Q1

REPORT INFORMATION
  Report Type: Report from Study
  Country: US (occurrence: US)
  Receive Date: 20140303
  Receipt Date: 20140303
  Transmission Date: 20141002
  Serious: No
  Sender: FDA-Public Use
  Company Number: US-ABBVIE-13P-163-1061800-00

PATIENT
  Age: 49 Year
  Sex: Female

DRUGS (6)
  1. HUMIRA [Suspect]
     Indication: CROHN^S DISEASE
     Dates: start: 20130110
  2. LIALDA [Concomitant]
     Indication: CROHN^S DISEASE
     Dosage: 4 TABS, ONCE DAILY
  3. BUDESONIDE [Concomitant]
     Indication: CROHN^S DISEASE
     Dosage: 3 PILLS, ONCE DAILY
  4. PRILOSEC [Concomitant]
     Indication: GASTROOESOPHAGEAL REFLUX DISEASE
  5. HYDROCODONE [Concomitant]
     Indication: PAIN
     Dosage: 5/325MG, AS NEEDED, EVERY 6 HOURS
  6. CALCIUM + IRON [Concomitant]
     Indication: PRODUCT USED FOR UNKNOWN INDICATION
     Dosage: DAILY

REACTIONS (1)
  - Influenza [Not Recovered/Not Resolved]
